FAERS Safety Report 10048620 (Version 2)
Quarter: 2014Q2

REPORT INFORMATION
  Report Type: Spontaneous
  Country: US (occurrence: None)
  Receive Date: 20140327
  Receipt Date: 20140414
  Transmission Date: 20141212
  Serious: Yes (Hospitalization)
  Sender: FDA-Public Use
  Company Number: UTC-046264

PATIENT
  Age: 67 Year
  Sex: Female
  Weight: 62.59 kg

DRUGS (2)
  1. REMODULIN ( 2.5 MILLIGRAM/MILLILITERS, INJECTION FOR INFUSION) ( TREPROSTINIL SODIUM) [Suspect]
     Indication: COR PULMONALE CHRONIC
     Dosage: 122.4 UG/KG ( 0.085 UG/KG, 1 IN 1 MIN), INTRAVENOUS DRIP
     Route: 042
     Dates: start: 20130806
  2. WARFARIN [Concomitant]

REACTIONS (1)
  - Epistaxis [None]
